FAERS Safety Report 6117400-4 (Version None)
Quarter: 2009Q1

REPORT INFORMATION
  Report Type: 
  Country: None (occurrence: None)
  Receive Date: 20090314
  Receipt Date: 20090114
  Transmission Date: 20090719
  Serious: No
  Sender: FDA-Public Use
  Company Number: US-ABBOTT-09P-163-0498193-00

PATIENT
  Sex: Female
  Weight: 90.8 kg

DRUGS (8)
  1. HUMIRA [Suspect]
     Indication: RHEUMATOID ARTHRITIS
     Route: 058
     Dates: start: 20070101
  2. HUMIRA [Suspect]
     Indication: FIBROMYALGIA
  3. HUMIRA [Suspect]
     Indication: RHEUMATOID ARTHRITIS
     Route: 058
     Dates: start: 20081201
  4. HUMIRA [Suspect]
     Indication: FIBROMYALGIA
  5. LISINOPRIL [Concomitant]
     Indication: HYPERTENSION
     Route: 048
  6. TOPAMAX [Concomitant]
     Indication: MIGRAINE
     Dosage: EVERY NIGHT
     Route: 048
  7. DARVOCET-N 100 [Concomitant]
     Indication: BREAKTHROUGH PAIN
     Route: 048
  8. AMBIEN [Concomitant]
     Indication: INSOMNIA

REACTIONS (6)
  - DRUG DELIVERY SYSTEM MALFUNCTION [None]
  - INCORRECT DOSE ADMINISTERED [None]
  - INJECTION SITE ERYTHEMA [None]
  - INJECTION SITE IRRITATION [None]
  - INJECTION SITE PAPULE [None]
  - INJECTION SITE PRURITUS [None]
